FAERS Safety Report 5778861-3 (Version None)
Quarter: 2008Q2

REPORT INFORMATION
  Report Type: 
  Country: None (occurrence: None)
  Receive Date: 20080619
  Receipt Date: 20080610
  Transmission Date: 20081010
  Serious: Yes (Other)
  Sender: FDA-Public Use
  Company Number: AU-JNJFOC-20080602662

PATIENT
  Sex: Male

DRUGS (12)
  1. SPORANOX [Suspect]
     Indication: BRONCHOPULMONARY ASPERGILLOSIS ALLERGIC
     Route: 065
  2. PREDNISONE TAB [Interacting]
     Indication: DRUG USE FOR UNKNOWN INDICATION
     Route: 065
  3. CARTIA XT [Interacting]
     Indication: DRUG USE FOR UNKNOWN INDICATION
     Route: 065
  4. LANTIS [Interacting]
     Indication: DRUG USE FOR UNKNOWN INDICATION
     Route: 065
  5. NOVORAPID [Interacting]
     Indication: DRUG USE FOR UNKNOWN INDICATION
     Route: 065
  6. NODOPLUS [Interacting]
     Indication: DRUG USE FOR UNKNOWN INDICATION
     Route: 065
  7. MONOPRIL [Interacting]
     Indication: DRUG USE FOR UNKNOWN INDICATION
     Route: 065
  8. OROXINE [Interacting]
     Indication: DRUG USE FOR UNKNOWN INDICATION
     Route: 065
  9. SERETIDE [Interacting]
     Indication: DRUG USE FOR UNKNOWN INDICATION
     Route: 065
  10. SINGULAIR [Interacting]
     Indication: DRUG USE FOR UNKNOWN INDICATION
     Route: 065
  11. VENTOLIN [Interacting]
     Indication: DRUG USE FOR UNKNOWN INDICATION
     Route: 065
  12. ZANIDIP [Interacting]
     Indication: DRUG USE FOR UNKNOWN INDICATION
     Route: 065

REACTIONS (4)
  - DRUG INTERACTION [None]
  - EXERCISE TOLERANCE DECREASED [None]
  - GASTROOESOPHAGEAL REFLUX DISEASE [None]
  - TACHYCARDIA [None]
